FAERS Safety Report 5858409-5 (Version None)
Quarter: 2008Q3

REPORT INFORMATION
  Report Type: 
  Country: None (occurrence: None)
  Receive Date: 20080826
  Receipt Date: 20080815
  Transmission Date: 20090109
  Serious: Yes (Death, Life-Threatening, Hospitalization)
  Sender: FDA-Public Use
  Company Number: AU-ROCHE-470565

PATIENT
  Sex: Female
  Weight: 65 kg

DRUGS (13)
  1. CAPECITABINE [Suspect]
     Dosage: AMOUNT AND FREQUENCY: 2500 MG/M2, DAYS 1-14, EVERY THREE WEEKS.
     Route: 048
     Dates: start: 20061031, end: 20061204
  2. BEVACIZUMAB [Suspect]
     Route: 042
     Dates: start: 20061031, end: 20061105
  3. MITOMYCIN [Suspect]
     Dosage: LAST DOSE DATE THIS CYCLE: 04 NOVEMBER 2006.
     Route: 042
     Dates: start: 20061031
  4. MAXOLON [Concomitant]
     Indication: PROPHYLAXIS
     Dosage: REPORTED AS METOCLOPRAMIDE HYDROCHLORIDE.
     Route: 048
     Dates: start: 20061027, end: 20061210
  5. SINEMET [Concomitant]
     Dosage: DOSE: 100/25 MG/DAY
     Route: 048
     Dates: start: 20040101, end: 20061210
  6. AVAPRO [Concomitant]
     Indication: PROPHYLAXIS
     Dosage: DOSE: 300/12.5 MG / DAY
     Route: 048
     Dates: start: 19970501, end: 20061210
  7. TROPISETRON [Concomitant]
     Indication: PROPHYLAXIS
     Dosage: ONE TREATMENT
     Route: 048
     Dates: start: 20061101, end: 20061210
  8. DEXAMETHASONE TAB [Concomitant]
     Indication: PROPHYLAXIS
     Dosage: PRE-TREATMENT
     Route: 042
     Dates: start: 20061031, end: 20061210
  9. DEXAMETHASONE TAB [Concomitant]
     Route: 048
     Dates: start: 20061101, end: 20061210
  10. TROPISETRON [Concomitant]
     Route: 042
     Dates: start: 20061031, end: 20061210
  11. PANAMAX [Concomitant]
     Route: 048
     Dates: end: 20061210
  12. PANADEINE [Concomitant]
     Route: 048
     Dates: end: 20061210
  13. ACETAMINOPHEN [Concomitant]
     Route: 048
     Dates: end: 20061210

REACTIONS (2)
  - NEUTROPENIC COLITIS [None]
  - PERIPHERAL EMBOLISM [None]
